FAERS Safety Report 6151307-1 (Version None)
Quarter: 2009Q2

REPORT INFORMATION
  Report Type: 
  Country: None (occurrence: None)
  Receive Date: 20090410
  Receipt Date: 20090401
  Transmission Date: 20091009
  Serious: Yes (Other)
  Sender: FDA-Public Use
  Company Number: PHHY2009NZ12710

PATIENT
  Sex: Male

DRUGS (1)
  1. GLEEVEC [Suspect]
     Indication: CHRONIC MYELOID LEUKAEMIA
     Dosage: 600 MG DAILY
     Dates: start: 20090312

REACTIONS (6)
  - DIARRHOEA [None]
  - DISTURBANCE IN ATTENTION [None]
  - DRY EYE [None]
  - DYSGEUSIA [None]
  - FEELING ABNORMAL [None]
  - MUSCLE SPASMS [None]
